FAERS Safety Report 4698903-6 (Version None)
Quarter: 2005Q2

REPORT INFORMATION
  Report Type: 
  Country: None (occurrence: None)
  Receive Date: 20050624
  Receipt Date: 20050616
  Transmission Date: 20051028
  Serious: Yes (Hospitalization)
  Sender: FDA-Public Use
  Company Number: MX-BOEHRINGER INGELHEIM PHARMACEUTICALS, INC.-2005-BP-10219MX

PATIENT
  Age: 63 Year
  Sex: Male

DRUGS (2)
  1. SECOTEX CAPSULES 0.4MG [Suspect]
     Indication: BENIGN PROSTATIC HYPERPLASIA
     Route: 048
     Dates: start: 20041103, end: 20041129
  2. SECOTEX CAPSULES 0.4MG [Suspect]
     Indication: PROSTATITIS

REACTIONS (1)
  - DRUG INEFFECTIVE [None]
